FAERS Safety Report 9540528 (Version 1)
Quarter: 2013Q3

REPORT INFORMATION
  Report Type: Spontaneous
  Country: US (occurrence: US)
  Receive Date: 20130920
  Receipt Date: 20130920
  Transmission Date: 20140515
  Serious: Yes (Other)
  Sender: FDA-Public Use
  Company Number: US-PFIZER INC-2013270433

PATIENT
  Age: 48 Year
  Sex: Female
  Weight: 83.9 kg

DRUGS (1)
  1. LYRICA [Suspect]
     Indication: FIBROMYALGIA
     Dosage: UNK

REACTIONS (9)
  - Breast cancer female [Unknown]
  - Cerebrovascular accident [Unknown]
  - Convulsion [Unknown]
  - Cardiac disorder [Unknown]
  - Migraine [Not Recovered/Not Resolved]
  - Restless legs syndrome [Unknown]
  - Memory impairment [Unknown]
  - Arthritis [Unknown]
  - Malaise [Unknown]
